FAERS Safety Report 18324655 (Version 1)
Quarter: 2020Q3

REPORT INFORMATION
  Report Type: Report from Study
  Country: US (occurrence: US)
  Receive Date: 20200929
  Receipt Date: 20200929
  Transmission Date: 20201103
  Serious: Yes (Death)
  Sender: FDA-Public Use
  Company Number: NVSC2020US261786

PATIENT
  Age: 61 Year
  Sex: Female

DRUGS (1)
  1. VOTRIENT [Suspect]
     Active Substance: PAZOPANIB HYDROCHLORIDE
     Indication: THYROID CANCER
     Dosage: UNK
     Route: 048

REACTIONS (4)
  - Hypotension [Fatal]
  - Dyspnoea [Fatal]
  - Sinus tachycardia [Fatal]
  - Respiratory failure [Fatal]
